FAERS Safety Report 19810393 (Version 1)
Quarter: 2021Q3

REPORT INFORMATION
  Report Type: Spontaneous
  Country: LB (occurrence: LB)
  Receive Date: 20210909
  Receipt Date: 20210909
  Transmission Date: 20211014
  Serious: Yes (Other)
  Sender: FDA-Public Use
  Company Number: LB-LUPIN PHARMACEUTICALS INC.-2021-16878

PATIENT
  Age: 2 Year
  Sex: Female

DRUGS (2)
  1. BETAMETHASONE. [Suspect]
     Active Substance: BETAMETHASONE
     Indication: GIANOTTI-CROSTI SYNDROME
     Dosage: UNK
     Route: 061
  2. DEXAMETHASONE. [Concomitant]
     Active Substance: DEXAMETHASONE
     Indication: GIANOTTI-CROSTI SYNDROME
     Dosage: UNK (0.5 MILLIGRAM PER 5 MILLILITER; FOR 4 DAYS)
     Route: 065

REACTIONS (2)
  - Drug ineffective [Unknown]
  - Off label use [None]
